FAERS Safety Report 5515478-X (Version None)
Quarter: 2007Q4

REPORT INFORMATION
  Report Type: 
  Country: None (occurrence: None)
  Receive Date: 20071113
  Receipt Date: 20070227
  Transmission Date: 20080405
  Serious: No
  Sender: FDA-Public Use
  Company Number: A0641185A

PATIENT
  Age: 81 Year
  Sex: Male

DRUGS (7)
  1. COREG [Suspect]
     Indication: LEFT VENTRICULAR DYSFUNCTION
     Dosage: 3.125MG TWICE PER DAY
     Route: 048
  2. LASIX [Concomitant]
  3. ACIPHEX [Concomitant]
  4. SPIRONOLACTONE [Concomitant]
  5. PHOSLO [Concomitant]
  6. CALCITRIOL [Concomitant]
  7. LIPITOR [Concomitant]

REACTIONS (3)
  - CHRONIC OBSTRUCTIVE PULMONARY DISEASE [None]
  - FATIGUE [None]
  - HYPOTENSION [None]
